FAERS Safety Report 6714281-2 (Version None)
Quarter: 2010Q2

REPORT INFORMATION
  Report Type: 
  Country: None (occurrence: None)
  Receive Date: 20100506
  Receipt Date: 20100106
  Transmission Date: 20101027
  Serious: No
  Sender: FDA-Public Use
  Company Number: US-BAUSCH-2010BL000165

PATIENT
  Age: 52 Year
  Sex: Female

DRUGS (7)
  1. LOTEMAX [Suspect]
     Indication: EYE INFLAMMATION
     Route: 047
     Dates: start: 20091212, end: 20091214
  2. RESTASIS [Concomitant]
     Indication: DRY EYE
     Route: 047
  3. PREMARIN [Concomitant]
  4. PRILOSEC [Concomitant]
  5. MULTI-VITAMINS [Concomitant]
     Route: 048
  6. LOVAZA [Concomitant]
  7. CALCIUM [Concomitant]

REACTIONS (1)
  - HEADACHE [None]
